FAERS Safety Report 17528396 (Version 1)
Quarter: 2020Q1

REPORT INFORMATION
  Report Type: Spontaneous
  Country: AU (occurrence: AU)
  Receive Date: 20200312
  Receipt Date: 20200312
  Transmission Date: 20200409
  Serious: Yes (Other)
  Sender: FDA-Public Use
  Company Number: AU-SUN PHARMACEUTICAL INDUSTRIES LTD-2020RR-240161

PATIENT
  Age: 13 Year
  Sex: Female

DRUGS (6)
  1. PAROMOMYCIN [Suspect]
     Active Substance: PAROMOMYCIN
     Indication: LEISHMANIASIS
     Dosage: UNK
     Route: 061
  2. ALLOPURINOL. [Suspect]
     Active Substance: ALLOPURINOL
     Indication: LEISHMANIASIS
     Dosage: 200 MILLIGRAM, TID
     Route: 065
  3. FLUCONAZOLE. [Suspect]
     Active Substance: FLUCONAZOLE
     Indication: LEISHMANIASIS
     Dosage: 300 MILLIGRAM, DAILY
     Route: 065
  4. AMPHOTERICIN B LIPOSOME [Suspect]
     Active Substance: AMPHOTERICIN B
     Indication: LEISHMANIASIS
     Dosage: UNK
     Route: 065
  5. MILTEFOSINE [Suspect]
     Active Substance: MILTEFOSINE
     Dosage: 50 MILLIGRAM, TID
     Route: 065
  6. MILTEFOSINE [Suspect]
     Active Substance: MILTEFOSINE
     Indication: LEISHMANIASIS
     Dosage: 50 MILLIGRAM, BID
     Route: 065

REACTIONS (3)
  - Drug ineffective [Unknown]
  - Therapeutic product effect incomplete [Unknown]
  - Anaphylactic reaction [Unknown]
